FAERS Safety Report 14586969 (Version 1)
Quarter: 2018Q1

REPORT INFORMATION
  Report Type: Spontaneous
  Country: US (occurrence: US)
  Receive Date: 20180301
  Receipt Date: 20180301
  Transmission Date: 20180509
  Serious: Yes (Hospitalization, Other)
  Sender: FDA-Public Use
  Company Number: US-PFIZER INC-2018084089

PATIENT
  Sex: Female
  Weight: 101 kg

DRUGS (23)
  1. BACLOFEN. [Suspect]
     Active Substance: BACLOFEN
     Dosage: 29.98 UG, DAILY
     Route: 037
  2. BACLOFEN. [Suspect]
     Active Substance: BACLOFEN
     Dosage: 33 UG, DAILY
     Route: 037
  3. ROXICODONE [Suspect]
     Active Substance: OXYCODONE HYDROCHLORIDE
     Dosage: UNK, AS NEEDED (1-2 TABLETS EVERY 4 (FOUR) HOURS AS NEEDED)
     Route: 048
  4. RESTORIL [Suspect]
     Active Substance: TEMAZEPAM
     Dosage: 15 MG, AS NEEDED (AT BEDTIME)
  5. ZYRTEC [Concomitant]
     Active Substance: CETIRIZINE HYDROCHLORIDE
     Dosage: 10 MG, AS NEEDED (1 TABLET 1X/DAY)
  6. BACLOFEN. [Suspect]
     Active Substance: BACLOFEN
     Dosage: 37.9 UG, DAILY
     Route: 037
  7. RESTORIL [Suspect]
     Active Substance: TEMAZEPAM
     Dosage: 30 MG, AS NEEDED (AT BEDTIME)
  8. VITAMIN D2 [Concomitant]
     Active Substance: ERGOCALCIFEROL
     Dosage: 50000 IU, WEEKLY
  9. EXCEDRIN [Concomitant]
     Active Substance: ACETAMINOPHEN\ASPIRIN\CAFFEINE
     Indication: MIGRAINE
     Dosage: 2 DF, AS NEEDED [ACETYLSALICYLIC ACID 250 MG/ CAFFEINE 65 MG/ PARACETAMOL250 MG] (EVERY 6 HOURS)
  10. NEURONTIN [Suspect]
     Active Substance: GABAPENTIN
     Dosage: 900 MG, 3X/DAY
     Route: 048
  11. BACLOFEN. [Suspect]
     Active Substance: BACLOFEN
     Dosage: 25.5 UG, DAILY
     Route: 037
  12. CYMBALTA [Suspect]
     Active Substance: DULOXETINE HYDROCHLORIDE
     Dosage: 30 MG, 1X/DAY
     Route: 048
  13. ATIVAN [Concomitant]
     Active Substance: LORAZEPAM
     Dosage: 1 MG, AS NEEDED (EVERY 6 HOURS)
  14. SENNA S [Concomitant]
     Active Substance: DOCUSATE SODIUM\SENNA LEAF
     Dosage: 6 DF, AS NEEDED (1X/DAY) [DOCUSATE SODIUM 50MG/ SENNOSIDE A+B 8.6 MG]
  15. BACLOFEN. [Suspect]
     Active Substance: BACLOFEN
     Indication: MUSCLE SPASTICITY
     Dosage: 25 UG, DAILY
     Route: 037
     Dates: start: 201706
  16. LIORESAL [Suspect]
     Active Substance: BACLOFEN
     Dosage: 20 MG, AS NEEDED (3X/DAY)
     Route: 048
  17. BISACODYL. [Concomitant]
     Active Substance: BISACODYL
     Dosage: UNK
  18. CLARITIN [Concomitant]
     Active Substance: LORATADINE
     Dosage: 10 MG, AS NEEDED (1 TABLET 1X/DAY)
  19. ZANTAC [Concomitant]
     Active Substance: RANITIDINE HYDROCHLORIDE
     Dosage: 150 MG, AS NEEDED (150 MG, 1X/DAY )
  20. BACLOFEN. [Suspect]
     Active Substance: BACLOFEN
     Dosage: 26.49 UG, DAILY
     Route: 037
  21. BACLOFEN. [Suspect]
     Active Substance: BACLOFEN
     Dosage: 43.54 UG, DAILY
     Route: 037
  22. CARBOXYMETHYLCELLULOSE SODIUM. [Concomitant]
     Active Substance: CARBOXYMETHYLCELLULOSE SODIUM
     Indication: SUPPLEMENTATION THERAPY
     Dosage: 2 GTT, 1X/DAY (1 DROP INTO EACH EYE)
     Route: 047
  23. BENADRYL [Concomitant]
     Active Substance: DIPHENHYDRAMINE HYDROCHLORIDE
     Dosage: 25 MG, AS NEEDED (1 CAPSULE 1X/DAY)
     Route: 048

REACTIONS (6)
  - Altered state of consciousness [Unknown]
  - Medical device site discomfort [Unknown]
  - Weight decreased [Unknown]
  - Device dislocation [Unknown]
  - Decreased appetite [Unknown]
  - Unresponsive to stimuli [Unknown]

NARRATIVE: CASE EVENT DATE: 2017
